FAERS Safety Report 22205767 (Version 1)
Quarter: 2023Q2

REPORT INFORMATION
  Report Type: Spontaneous
  Country: US (occurrence: US)
  Receive Date: 20230413
  Receipt Date: 20230413
  Transmission Date: 20230721
  Serious: No
  Sender: FDA-Public Use
  Company Number: US-SA-SAC20230412001259

PATIENT
  Sex: Male

DRUGS (1)
  1. DUPIXENT [Suspect]
     Active Substance: DUPILUMAB
     Dosage: 300MG; FREQUENCY: OTHER
     Route: 058

REACTIONS (5)
  - Periorbital irritation [Unknown]
  - Dry skin [Unknown]
  - Periorbital pain [Unknown]
  - Injection site pain [Unknown]
  - Inappropriate schedule of product administration [Unknown]
